FAERS Safety Report 15205559 (Version 1)
Quarter: 2018Q3

REPORT INFORMATION
  Report Type: Spontaneous
  Country: US (occurrence: US)
  Receive Date: 20180628
  Receipt Date: 20180628
  Transmission Date: 20181010
  Serious: Yes (Death)
  Sender: FDA-Public Use
  Company Number: None

PATIENT
  Age: 80 Year
  Sex: Male

DRUGS (5)
  1. AVASTIN [Concomitant]
     Active Substance: BEVACIZUMAB
  2. LEUCOVORIN. [Concomitant]
     Active Substance: LEUCOVORIN
  3. GRANISETRON [Suspect]
     Active Substance: GRANISETRON
     Indication: RECTAL CANCER
     Dosage: ?          OTHER FREQUENCY:INFUSE 1MG INTRAVE;?
     Route: 065
  4. OXALIPLATIN. [Suspect]
     Active Substance: OXALIPLATIN
     Dosage: ?          OTHER FREQUENCY:INFUSE 200MG INTRA;?
     Route: 065
  5. FLUOROURACIL. [Concomitant]
     Active Substance: FLUOROURACIL

REACTIONS (1)
  - Death [None]
